FAERS Safety Report 17987062 (Version 4)
Quarter: 2020Q4

REPORT INFORMATION
  Report Type: Spontaneous
  Country: CO (occurrence: CO)
  Receive Date: 20200706
  Receipt Date: 20201017
  Transmission Date: 20210113
  Serious: Yes (Hospitalization, Other)
  Sender: FDA-Public Use
  Company Number: CO-ROCHE-2631091

PATIENT
  Age: 63 Year
  Sex: Female

DRUGS (6)
  1. CAPECITABINE. [Suspect]
     Active Substance: CAPECITABINE
     Indication: BREAST CANCER
     Route: 065
  2. ENALAPRIL [Concomitant]
     Active Substance: ENALAPRIL
  3. CARVEDILOL. [Suspect]
     Active Substance: CARVEDILOL
     Indication: PRODUCT USED FOR UNKNOWN INDICATION
     Route: 065
  4. HYDROCHLOROTHIAZIDE. [Concomitant]
     Active Substance: HYDROCHLOROTHIAZIDE
  5. GADOLINIUM [Concomitant]
     Active Substance: GADOLINIUM
  6. TYKERB [Suspect]
     Active Substance: LAPATINIB DITOSYLATE
     Indication: BREAST CANCER
     Route: 065
     Dates: end: 20200527

REACTIONS (17)
  - Breast cancer [Unknown]
  - Dehydration [Recovered/Resolved]
  - Coronavirus infection [Unknown]
  - Nausea [Unknown]
  - Urticaria [Unknown]
  - Malignant neoplasm progression [Unknown]
  - Metastases to bone [Unknown]
  - Ligament sprain [Unknown]
  - Diarrhoea [Unknown]
  - Kidney infection [Recovered/Resolved]
  - Gait disturbance [Recovered/Resolved]
  - Metastases to eye [Unknown]
  - Dyspnoea [Unknown]
  - Rash [Recovering/Resolving]
  - Dizziness [Unknown]
  - Syncope [Unknown]
  - Retinal injury [Unknown]

NARRATIVE: CASE EVENT DATE: 20200419
